FAERS Safety Report 5139611-7 (Version None)
Quarter: 2006Q4

REPORT INFORMATION
  Report Type: 
  Country: None (occurrence: None)
  Receive Date: 20061024
  Receipt Date: 20061013
  Transmission Date: 20070319
  Serious: Yes (Life-Threatening)
  Sender: FDA-Public Use
  Company Number: 2006-137413-NL

PATIENT
  Age: 17 Year
  Sex: Female

DRUGS (13)
  1. VECURONIUM BROMIDE [Suspect]
     Indication: INDUCTION OF ANAESTHESIA
     Dosage: 5 MG ONCE, INTRAVENOUS
     Route: 042
     Dates: start: 20051216, end: 20051216
  2. VECURONIUM BROMIDE [Suspect]
     Indication: MUSCLE RELAXANT THERAPY
     Dosage: 5 MG ONCE, INTRAVENOUS
     Route: 042
     Dates: start: 20051216, end: 20051216
  3. VECURONIUM BROMIDE [Suspect]
     Indication: INDUCTION OF ANAESTHESIA
     Dosage: 5 MG ONCE, INTRAVENOUS
     Route: 042
     Dates: start: 20060113, end: 20060113
  4. VECURONIUM BROMIDE [Suspect]
     Indication: MUSCLE RELAXANT THERAPY
     Dosage: 5 MG ONCE, INTRAVENOUS
     Route: 042
     Dates: start: 20060113, end: 20060113
  5. PROPOFOL [Concomitant]
  6. FENTANYL CITRATE [Concomitant]
  7. MIDAZOLAM HYDROCHLORIDE [Concomitant]
  8. KETAMINE HCL [Concomitant]
  9. SEVOFLURANE [Concomitant]
  10. FLUTICASONE PROPIONATE [Concomitant]
  11. SALMETEROL XINAFOATE [Concomitant]
  12. THEOPHYLLINE [Concomitant]
  13. HYDROCORTISONE SODIUM SUCCINATE [Concomitant]

REACTIONS (3)
  - ANAESTHETIC COMPLICATION [None]
  - ASTHMA [None]
  - BRONCHOSPASM [None]
